FAERS Safety Report 4286627-9 (Version None)
Quarter: 2004Q1

REPORT INFORMATION
  Report Type: 
  Country: None (occurrence: None)
  Receive Date: 20040204
  Receipt Date: 20040123
  Transmission Date: 20041129
  Serious: Yes (Hospitalization)
  Sender: FDA-Public Use
  Company Number: 04P-163-0248687-01

PATIENT
  Age: 52 Year
  Sex: Female

DRUGS (5)
  1. HUMIRA [Suspect]
     Indication: CROHN'S DISEASE
     Dosage: SUBCUTANEOUS
     Route: 058
     Dates: start: 20031029, end: 20031029
  2. PREDNISONE [Concomitant]
  3. MERCAPTOPURINE [Concomitant]
  4. CIPROFLOXACIN [Concomitant]
  5. METRONIDAZOLE [Concomitant]

REACTIONS (10)
  - AORTIC VALVE INCOMPETENCE [None]
  - ARTHRALGIA [None]
  - CROHN'S DISEASE [None]
  - CUSHINGOID [None]
  - DYSPNOEA [None]
  - ENDOCARDITIS [None]
  - HAEMOGLOBIN [None]
  - MYOPATHY STEROID [None]
  - PALLOR [None]
  - PLATELET COUNT INCREASED [None]
